FAERS Safety Report 24147475 (Version 1)
Quarter: 2024Q3

REPORT INFORMATION
  Report Type: Spontaneous
  Country: PS (occurrence: PS)
  Receive Date: 20240729
  Receipt Date: 20240729
  Transmission Date: 20241017
  Serious: Yes (Hospitalization, Other)
  Sender: EPIC PHARM
  Company Number: PS-EPICPHARMA-PS-2024EPCLIT00885

PATIENT
  Age: 8 Year
  Sex: Female

DRUGS (2)
  1. CEFTRIAXONE SODIUM [Suspect]
     Active Substance: CEFTRIAXONE SODIUM
     Indication: Meningitis bacterial
     Route: 042
  2. ACYCLOVIR [Concomitant]
     Active Substance: ACYCLOVIR
     Indication: Meningitis bacterial
     Route: 048

REACTIONS (2)
  - Cholecystitis acute [Recovered/Resolved]
  - Pseudocholelithiasis [Recovered/Resolved]
